FAERS Safety Report 17043523 (Version 3)
Quarter: 2019Q4

REPORT INFORMATION
  Report Type: Spontaneous
  Country: US (occurrence: US)
  Receive Date: 20191118
  Receipt Date: 20191205
  Transmission Date: 20200122
  Serious: No
  Sender: FDA-Public Use
  Company Number: US-PFIZER INC-2019168901

PATIENT
  Age: 80 Year
  Sex: Male
  Weight: 107.95 kg

DRUGS (7)
  1. LYRICA [Suspect]
     Active Substance: PREGABALIN
     Indication: DISCOMFORT
     Dosage: 75 MG, (1-2 CAPS EVERY BEDTIME AS NEEDED)
     Route: 048
  2. LISINOPRIL HCTZ [Concomitant]
     Active Substance: HYDROCHLOROTHIAZIDE\LISINOPRIL
     Indication: HYPERTENSION
     Dosage: UNK, 1X/DAY [LISINOPRIL: 12.5MG/HCTZ: 10MG]
  3. LYRICA [Suspect]
     Active Substance: PREGABALIN
     Indication: NEUROPATHY PERIPHERAL
     Dosage: 75 MG, ALTERNATE DAY (EVERY OTHER NIGHT)
     Route: 048
     Dates: start: 20190221
  4. LYRICA [Suspect]
     Active Substance: PREGABALIN
     Indication: DIABETIC NEUROPATHY
     Dosage: 150 MG, 1X/DAY (TWO AT BED TIME)
  5. OXYBUTYNIN CHLORIDE. [Concomitant]
     Active Substance: OXYBUTYNIN CHLORIDE
     Indication: POLYURIA
     Dosage: 15 MG, 1X/DAY
  6. LYRICA [Suspect]
     Active Substance: PREGABALIN
     Indication: PAIN
     Dosage: 1 DF, 1X/DAY AT BEDTIME
     Route: 048
     Dates: start: 20190221
  7. LYRICA [Suspect]
     Active Substance: PREGABALIN
     Dosage: 150 MG, 1X/DAY (TWO AT BED TIME)
     Route: 048

REACTIONS (2)
  - Body height decreased [Unknown]
  - Intentional product misuse [Unknown]
